FAERS Safety Report 21472277 (Version 1)
Quarter: 2022Q4

REPORT INFORMATION
  Report Type: Spontaneous
  Country: CH (occurrence: CH)
  Receive Date: 20221018
  Receipt Date: 20221018
  Transmission Date: 20230112
  Serious: Yes (Congenital Anomaly, Other)
  Sender: FDA-Public Use
  Company Number: CH-NOVARTISPH-NVSC2020CH359118

PATIENT

DRUGS (7)
  1. SUMATRIPTAN [Suspect]
     Active Substance: SUMATRIPTAN
     Indication: Foetal exposure during pregnancy
     Dosage: 500 MG (MATERNAL DOSE)
     Route: 064
  2. SERTRALINE [Concomitant]
     Active Substance: SERTRALINE HYDROCHLORIDE
     Indication: Foetal exposure during pregnancy
     Dosage: UNK
     Route: 064
  3. OLANZAPINE [Concomitant]
     Active Substance: OLANZAPINE
     Indication: Foetal exposure during pregnancy
     Dosage: UNK
     Route: 064
  4. ALPRAZOLAM [Concomitant]
     Active Substance: ALPRAZOLAM
     Indication: Foetal exposure during pregnancy
     Dosage: UNK
     Route: 064
  5. ZOLPIDEM TARTRATE [Concomitant]
     Active Substance: ZOLPIDEM TARTRATE
     Indication: Foetal exposure during pregnancy
     Dosage: UNK
     Route: 064
  6. ESOMEPRAZOLE [Concomitant]
     Active Substance: ESOMEPRAZOLE
     Indication: Foetal exposure during pregnancy
     Dosage: UNK
     Route: 064
  7. DOMPERIDONE [Concomitant]
     Active Substance: DOMPERIDONE
     Indication: Foetal exposure during pregnancy
     Dosage: UNK
     Route: 064

REACTIONS (2)
  - Foetal exposure during pregnancy [Unknown]
  - Sacral hypoplasia [Unknown]
